FAERS Safety Report 7902198-7 (Version None)
Quarter: 2011Q4

REPORT INFORMATION
  Report Type: 
  Country: None (occurrence: None)
  Receive Date: 20111108
  Receipt Date: 20111103
  Transmission Date: 20120403
  Serious: No
  Sender: FDA-Public Use
  Company Number: US-BAYER-2011-107171

PATIENT

DRUGS (1)
  1. EOVIST [Suspect]
     Dosage: 2 ML/SEC THEN DECREASED TO 1.3ML/SEC

REACTIONS (1)
  - CHEST DISCOMFORT [None]
